FAERS Safety Report 24124426 (Version 1)
Quarter: 2024Q3

REPORT INFORMATION
  Report Type: Report from Study
  Country: US (occurrence: None)
  Receive Date: 20240723
  Receipt Date: 20240723
  Transmission Date: 20241016
  Serious: Yes (Other)
  Sender: ASTRAZENECA
  Company Number: 2022A419694

PATIENT
  Sex: Male

DRUGS (1)
  1. LYNPARZA [Suspect]
     Active Substance: OLAPARIB
     Indication: Bone cancer
     Route: 048

REACTIONS (9)
  - Loss of consciousness [Unknown]
  - Epistaxis [Unknown]
  - Nasopharyngitis [Unknown]
  - Headache [Unknown]
  - Cough [Unknown]
  - Scratch [Unknown]
  - Pain [Unknown]
  - Insomnia [Unknown]
  - Off label use [Unknown]
